FAERS Safety Report 6076490-8 (Version None)
Quarter: 2009Q1

REPORT INFORMATION
  Report Type: 
  Country: None (occurrence: None)
  Receive Date: 20090213
  Receipt Date: 20090209
  Transmission Date: 20090719
  Serious: Yes (Hospitalization)
  Sender: FDA-Public Use
  Company Number: US-WYE-H08134709

PATIENT
  Age: 61 Year
  Sex: Male

DRUGS (4)
  1. TORISEL [Suspect]
     Indication: RENAL CELL CARCINOMA
     Dosage: 25 MG ON DAYS 1, 8, 15 AND 22
     Route: 042
     Dates: start: 20081215, end: 20081229
  2. TORISEL [Suspect]
     Dosage: 25 MG ON DAYS 1, 8, 15 AND 22
     Route: 042
     Dates: start: 20081231, end: 20081231
  3. BEVACIZUMAB [Suspect]
     Indication: RENAL CELL CARCINOMA
     Dosage: 10 MG/KG ON DAYS 1 AND 15
     Route: 042
     Dates: start: 20081215, end: 20081229
  4. BEVACIZUMAB [Suspect]
     Dosage: 10 MG/KG ON DAYS 1 AND 15
     Route: 042
     Dates: start: 20081231, end: 20081231

REACTIONS (3)
  - DEHYDRATION [None]
  - DIARRHOEA [None]
  - VOMITING [None]
